FAERS Safety Report 21057412 (Version 1)
Quarter: 2022Q3

REPORT INFORMATION
  Report Type: Report from Study
  Country: PL (occurrence: PL)
  Receive Date: 20220708
  Receipt Date: 20220708
  Transmission Date: 20221027
  Serious: Yes (Other)
  Sender: FDA-Public Use
  Company Number: PL-PFIZER INC-2020336649

PATIENT
  Age: 39 Year
  Sex: Female
  Weight: 96 kg

DRUGS (4)
  1. ABROCITINIB [Suspect]
     Active Substance: ABROCITINIB
     Indication: Dermatitis atopic
     Dosage: 100 MG, DAILY
     Route: 048
     Dates: start: 20191016, end: 20200827
  2. SYMBICORT [Concomitant]
     Active Substance: BUDESONIDE\FORMOTEROL FUMARATE DIHYDRATE
     Indication: Asthma
     Dosage: [BUDESONIDE 160 MG]/[FORMOTEROL FUMARATE 4.5 MG], DAILY (Q24H) AEROSOL
     Route: 055
     Dates: start: 2016
  3. ACYCLOVIR [Concomitant]
     Active Substance: ACYCLOVIR
     Indication: Prophylaxis
     Dosage: 200 MG, 2X/DAY (Q12H)
     Route: 048
     Dates: start: 20190429
  4. CLEMASTINUM [CLEMASTINE] [Concomitant]
     Indication: Dermatitis atopic
     Dosage: 1 MG, 2X/DAY (Q12H)
     Route: 048
     Dates: start: 20190208

REACTIONS (1)
  - Herpes ophthalmic [Recovering/Resolving]

NARRATIVE: CASE EVENT DATE: 20200827
